FAERS Safety Report 13345546 (Version 1)
Quarter: 2017Q1

REPORT INFORMATION
  Report Type: Spontaneous
  Country: TW (occurrence: TW)
  Receive Date: 20170317
  Receipt Date: 20170317
  Transmission Date: 20170428
  Serious: Yes (Other)
  Sender: FDA-Public Use
  Company Number: TW-ASTELLAS-2017US010455

PATIENT
  Weight: 60 kg

DRUGS (1)
  1. PROGRAF [Suspect]
     Active Substance: TACROLIMUS\TACROLIMUS ANHYDROUS
     Indication: LIMB PROSTHESIS USER
     Dosage: 9 MG DAILY DOSE, UNKNOWN FREQ.
     Route: 048
     Dates: start: 20170307

REACTIONS (3)
  - Product quality issue [Unknown]
  - Off label use [Unknown]
  - Immunosuppressant drug level decreased [Unknown]

NARRATIVE: CASE EVENT DATE: 2017
